FAERS Safety Report 17820446 (Version 11)
Quarter: 2022Q1

REPORT INFORMATION
  Report Type: Report from Study
  Country: BE (occurrence: BE)
  Receive Date: 20200525
  Receipt Date: 20220126
  Transmission Date: 20220424
  Serious: Yes (Hospitalization, Other)
  Sender: FDA-Public Use
  Company Number: BE-ABBVIE-19S-013-2652429-00

PATIENT
  Sex: Female
  Weight: 46 kg

DRUGS (36)
  1. CARBIDOPA\LEVODOPA [Suspect]
     Active Substance: CARBIDOPA\LEVODOPA
     Indication: Parkinson^s disease
     Dosage: MD= 1.5ML CD= 1.0ML/HR DURING 16HRS ED= 1ML
     Route: 050
     Dates: start: 20170403, end: 20170407
  2. CARBIDOPA\LEVODOPA [Suspect]
     Active Substance: CARBIDOPA\LEVODOPA
     Dosage: DOSES CONTINUOUSLY MONITORED AND ADAPTED
     Route: 050
     Dates: start: 20170407, end: 20190102
  3. CARBIDOPA\LEVODOPA [Suspect]
     Active Substance: CARBIDOPA\LEVODOPA
     Dosage: MD= 2.3ML CD= 2.8ML/HR DURING 16HRS ED= 2.2ML
     Route: 050
     Dates: start: 20190102, end: 20190128
  4. CARBIDOPA\LEVODOPA [Suspect]
     Active Substance: CARBIDOPA\LEVODOPA
     Dosage: MD= 2.3ML CD= 2.8ML/HR DURING 16HRS ED= 1.9ML
     Route: 050
     Dates: start: 20190128, end: 20190321
  5. CARBIDOPA\LEVODOPA [Suspect]
     Active Substance: CARBIDOPA\LEVODOPA
     Dosage: MD= 2.3ML CD= 2.8ML/HR DURING 16HRS ED= 2.2ML
     Route: 050
     Dates: start: 20190321, end: 20190430
  6. CARBIDOPA\LEVODOPA [Suspect]
     Active Substance: CARBIDOPA\LEVODOPA
     Dosage: MD=2.5ML;CD=2.8ML/HR DURING 16HRS;ED=2.2ML
     Route: 050
     Dates: start: 20190430, end: 20190506
  7. CARBIDOPA\LEVODOPA [Suspect]
     Active Substance: CARBIDOPA\LEVODOPA
     Dosage: MD: 2.5ML; CD: 3.1 ML/H FOR 16HRS; ED: 2.2ML
     Route: 050
     Dates: start: 20190506, end: 2019
  8. CARBIDOPA\LEVODOPA [Suspect]
     Active Substance: CARBIDOPA\LEVODOPA
     Dosage: MD: 2.5ML; CD: 3.3 ML/H FOR 16HRS; ED: 2.2ML
     Route: 050
     Dates: start: 2019, end: 20191206
  9. CARBIDOPA\LEVODOPA [Suspect]
     Active Substance: CARBIDOPA\LEVODOPA
     Dosage: MD: 2.5ML; CD: 3ML/H FOR 16HRS; ED: 1.5ML
     Route: 050
     Dates: start: 20191206, end: 20191224
  10. CARBIDOPA\LEVODOPA [Suspect]
     Active Substance: CARBIDOPA\LEVODOPA
     Dosage: MD: 2.5ML; CD: 3.2ML/H FOR 16HRS; ED: 1.5ML
     Route: 050
     Dates: start: 20191224, end: 20200225
  11. CARBIDOPA\LEVODOPA [Suspect]
     Active Substance: CARBIDOPA\LEVODOPA
     Dosage: MD: 2.5ML; CD: 2.9ML/H FOR 16HRS; ED: 1.5ML
     Route: 050
     Dates: start: 20200225, end: 20200522
  12. CARBIDOPA\LEVODOPA [Suspect]
     Active Substance: CARBIDOPA\LEVODOPA
     Dosage: MD=2ML; CD=2.6ML/H FOR 16HRS; ED=1.5ML
     Route: 050
     Dates: start: 20200522, end: 20200618
  13. CARBIDOPA\LEVODOPA [Suspect]
     Active Substance: CARBIDOPA\LEVODOPA
     Dosage: MD=2ML; CD=2.3ML/H FOR 16HRS; ED=1.5ML
     Route: 050
     Dates: start: 20200618, end: 2020
  14. CARBIDOPA\LEVODOPA [Suspect]
     Active Substance: CARBIDOPA\LEVODOPA
     Dosage: MD=2ML; CD=2.3ML/H FOR 16HRS; ED=1.5ML
     Route: 050
     Dates: start: 20201103, end: 202011
  15. CARBIDOPA\LEVODOPA [Suspect]
     Active Substance: CARBIDOPA\LEVODOPA
     Dosage: MD=2ML; CD=2.3ML/H FOR 16HRS; ED=1.5ML
     Route: 050
     Dates: start: 202011
  16. CARBIDOPA\LEVODOPA [Suspect]
     Active Substance: CARBIDOPA\LEVODOPA
     Dosage: MD 5 ML; CD 2.5 ML/HR; ED 1.5ML
     Route: 050
     Dates: start: 20210324
  17. CARBIDOPA\LEVODOPA [Suspect]
     Active Substance: CARBIDOPA\LEVODOPA
     Dosage: MD 2.5 ML; CD 2.5 ML/HR; ED 1.5ML
     Route: 050
     Dates: start: 20210726, end: 20210922
  18. CARBIDOPA\LEVODOPA [Suspect]
     Active Substance: CARBIDOPA\LEVODOPA
     Dosage: MD 2.5 ML; CD 2.6 ML/HR; ED 1.5ML
     Route: 050
     Dates: start: 20210922, end: 20211231
  19. CARBIDOPA\LEVODOPA [Suspect]
     Active Substance: CARBIDOPA\LEVODOPA
     Dosage: MD 2.5 ML; CD 2.8 ML/HR DURING 16 HOURS; ED 1.5 ML
     Route: 050
     Dates: start: 20211231, end: 20220120
  20. CARBIDOPA\LEVODOPA [Suspect]
     Active Substance: CARBIDOPA\LEVODOPA
     Dosage: MD 2.5 ML; CD 3.0 ML/HR DURING 16 HOURS; ED 1.6 ML
     Route: 050
     Dates: start: 20220120
  21. STALEVO [Concomitant]
     Active Substance: CARBIDOPA\ENTACAPONE\LEVODOPA
     Indication: Product used for unknown indication
     Dosage: FORM STRENGTH: 50MG/12.5MG/200MG RESCUE MEDICATION?AT 7-10-14-18-21 HOUR
     Route: 065
  22. AMLODIPINE BESYLATE [Concomitant]
     Active Substance: AMLODIPINE BESYLATE
     Indication: Product used for unknown indication
     Route: 065
  23. LIPITOR [Concomitant]
     Active Substance: ATORVASTATIN CALCIUM
     Indication: Product used for unknown indication
     Route: 065
  24. DOMPERIDONE [Concomitant]
     Active Substance: DOMPERIDONE
     Indication: Product used for unknown indication
     Route: 065
  25. PANTOPRAZOLE [Concomitant]
     Active Substance: PANTOPRAZOLE
     Indication: Product used for unknown indication
     Route: 065
  26. TEMESTA [Concomitant]
     Indication: Product used for unknown indication
     Route: 065
  27. BISOPROLOL FUMARATE [Concomitant]
     Active Substance: BISOPROLOL FUMARATE
     Indication: Product used for unknown indication
     Route: 065
  28. RIVOTRIL [Concomitant]
     Active Substance: CLONAZEPAM
     Indication: Product used for unknown indication
     Route: 065
  29. LORMETAZEPAM [Concomitant]
     Active Substance: LORMETAZEPAM
     Indication: Product used for unknown indication
     Route: 065
  30. LORMETAZEPAM [Concomitant]
     Active Substance: LORMETAZEPAM
     Dosage: HALF A TABLET
  31. TRAZODONE HYDROCHLORIDE [Concomitant]
     Active Substance: TRAZODONE HYDROCHLORIDE
     Indication: Product used for unknown indication
  32. BENSERAZIDE\LEVODOPA [Concomitant]
     Active Substance: BENSERAZIDE\LEVODOPA
     Indication: Parkinson^s disease
     Dosage: FORM STRENGTH: 200MG/50MG; UNIT DOSE: 0.25 UNIT
     Route: 048
  33. BENSERAZIDE\LEVODOPA [Concomitant]
     Active Substance: BENSERAZIDE\LEVODOPA
     Dosage: A QUARTER TABLET
  34. AZILECT [Concomitant]
     Active Substance: RASAGILINE MESYLATE
     Indication: Parkinson^s disease
     Route: 048
  35. AZILECT [Concomitant]
     Active Substance: RASAGILINE MESYLATE
  36. AMANTADINE [Concomitant]
     Active Substance: AMANTADINE
     Indication: Parkinson^s disease
     Route: 048
     Dates: end: 201609

REACTIONS (31)
  - Coronary arterial stent insertion [Unknown]
  - Urinary tract infection [Unknown]
  - Device placement issue [Unknown]
  - Restlessness [Unknown]
  - Stress [Not Recovered/Not Resolved]
  - Medical device site vesicles [Unknown]
  - Extra dose administered [Unknown]
  - Off label use [Recovered/Resolved]
  - Nervousness [Unknown]
  - Hyperaesthesia [Unknown]
  - Skin lesion [Unknown]
  - Tremor [Unknown]
  - Stoma site discharge [Not Recovered/Not Resolved]
  - Dyskinesia [Recovered/Resolved]
  - Dyskinesia [Not Recovered/Not Resolved]
  - Insomnia [Recovered/Resolved]
  - Insomnia [Unknown]
  - Dyskinesia [Recovered/Resolved]
  - On and off phenomenon [Not Recovered/Not Resolved]
  - Freezing phenomenon [Not Recovered/Not Resolved]
  - Freezing phenomenon [Recovered/Resolved]
  - Freezing phenomenon [Recovered/Resolved]
  - Stoma site erythema [Recovering/Resolving]
  - Stoma site hypergranulation [Recovered/Resolved]
  - Stoma site erythema [Recovered/Resolved]
  - Drug ineffective [Unknown]
  - Therapeutic product effect incomplete [Unknown]
  - Unevaluable event [Unknown]
  - Device issue [Recovered/Resolved]
  - Device dislocation [Unknown]
  - Device occlusion [Recovered/Resolved]

NARRATIVE: CASE EVENT DATE: 20190101
